FAERS Safety Report 10224271 (Version 1)
Quarter: 2014Q2

REPORT INFORMATION
  Report Type: Spontaneous
  Country: US (occurrence: None)
  Receive Date: 20140605
  Receipt Date: 20140605
  Transmission Date: 20141212
  Serious: Yes (Death)
  Sender: FDA-Public Use
  Company Number: UNT-2014-001205

PATIENT
  Age: 62 Year
  Sex: Female
  Weight: 45.4 kg

DRUGS (1)
  1. REMODULIN (TREPROSTINIL SODIUM) INJECTION, 2.5MG/ML [Suspect]
     Indication: COR PULMONALE CHRONIC
     Dosage: 0.03 UG/KG, CONTINUING, SUBCUTANEOUS
     Route: 058
     Dates: start: 20130828

REACTIONS (1)
  - Death [None]
